FAERS Safety Report 21304187 (Version 1)
Quarter: 2022Q3

REPORT INFORMATION
  Report Type: Report from Study
  Country: US (occurrence: US)
  Receive Date: 20220907
  Receipt Date: 20220907
  Transmission Date: 20221027
  Serious: Yes (Death, Hospitalization)
  Sender: FDA-Public Use
  Company Number: US-MYLANLABS-2022M1091652

PATIENT
  Age: 74 Year
  Sex: Male

DRUGS (7)
  1. ETOPOSIDE [Suspect]
     Active Substance: ETOPOSIDE
     Indication: Double hit lymphoma
     Dosage: 50 MILLIGRAM/SQ. METER, CYCLE, ONE CYCLE EVERY 3 WEEKS; ON DAYS 1-4
     Route: 042
  2. PREDNISONE [Suspect]
     Active Substance: PREDNISONE
     Indication: Double hit lymphoma
     Dosage: 60 MILLIGRAM/SQ. METER, CYCLE, ONE CYCLE EVERY 3 WEEKS; TWICE DAILY ON DAYS 1-5
     Route: 048
  3. DOXORUBICIN [Suspect]
     Active Substance: DOXORUBICIN
     Indication: Double hit lymphoma
     Dosage: 10 MILLIGRAM/SQ. METER, CYCLE, ONE CYCLE EVERY 3 WEEKS; ON DAYS 1-4
     Route: 042
  4. VENETOCLAX [Suspect]
     Active Substance: VENETOCLAX
     Indication: Double hit lymphoma
     Dosage: 600 MILLIGRAM, CYCLE; 600 MG ONCE DAILY FOR 5 DAYS PER CYCLE
     Route: 048
  5. RITUXIMAB [Suspect]
     Active Substance: RITUXIMAB
     Indication: Double hit lymphoma
     Dosage: 375 MILLIGRAM/SQ. METER, CYCLE, ON DAY 1; ONE CYCLE EVERY 3 WEEKS
     Route: 042
  6. VINCRISTINE [Suspect]
     Active Substance: VINCRISTINE
     Indication: Double hit lymphoma
     Dosage: 0.4 MILLIGRAM/SQ. METER, CYCLE, ONE CYCLE EVERY 3 WEEKS; ON DAYS 1-4
     Route: 042
  7. CYCLOPHOSPHAMIDE [Suspect]
     Active Substance: CYCLOPHOSPHAMIDE
     Indication: Double hit lymphoma
     Dosage: 750 MILLIGRAM/SQ. METER, CYCLE, ONE CYCLE EVERY 3 WEEKS; ON DAY 5
     Route: 042

REACTIONS (5)
  - Febrile neutropenia [Fatal]
  - Sepsis [Fatal]
  - Bacteraemia [Fatal]
  - Enteritis [Unknown]
  - Intestinal ischaemia [Unknown]
